FAERS Safety Report 7319273-0 (Version None)
Quarter: 2011Q1

REPORT INFORMATION
  Report Type: 
  Country: None (occurrence: None)
  Receive Date: 20110228
  Receipt Date: 20100106
  Transmission Date: 20110831
  Serious: No
  Sender: FDA-Public Use
  Company Number: A0838071A

PATIENT
  Sex: Male

DRUGS (3)
  1. LAMICTAL [Suspect]
     Dosage: 400MGD PER DAY
     Route: 048
  2. SEROQUEL [Concomitant]
  3. ABILIFY [Concomitant]

REACTIONS (1)
  - DRUG ADMINISTRATION ERROR [None]
